FAERS Safety Report 17060735 (Version 1)
Quarter: 2019Q4

REPORT INFORMATION
  Report Type: Spontaneous
  Country: FR (occurrence: FR)
  Receive Date: 20191121
  Receipt Date: 20191121
  Transmission Date: 20200122
  Serious: Yes (Other)
  Sender: FDA-Public Use
  Company Number: FR-AMGEN-FRASP2019189902

PATIENT
  Age: 40 Year
  Sex: Female

DRUGS (26)
  1. VITAMIN B9 [Concomitant]
     Dosage: 50 MILLIGRAM, QOD
     Route: 042
  2. IRON [Concomitant]
     Active Substance: IRON
     Dosage: 1000 MILLIGRAM
     Route: 042
  3. METHOTREXATE. [Concomitant]
     Active Substance: METHOTREXATE
     Dosage: 25 MILLIGRAM/SQ. METER, QWK
  4. DAUNORUBICIN [Concomitant]
     Active Substance: DAUNORUBICIN
     Dosage: 250 MILLIGRAM/SQ. METER
  5. FILGRASTIM [Suspect]
     Active Substance: FILGRASTIM
     Indication: NEUTROPHIL COUNT ABNORMAL
     Dosage: 300 MICROGRAM, QD
     Route: 042
  6. DARBEPOETIN ALFA [Suspect]
     Active Substance: DARBEPOETIN ALFA
     Indication: PLATELET COUNT ABNORMAL
     Dosage: 500 MICROGRAM, 2 TIMES/WK
     Route: 058
  7. CYCLOPHOSPHAMIDE. [Concomitant]
     Active Substance: CYCLOPHOSPHAMIDE
     Dosage: 500 MILLIGRAM/SQ. METER
  8. CYCLOPHOSPHAMIDE. [Concomitant]
     Active Substance: CYCLOPHOSPHAMIDE
     Dosage: 1500 MILLIEQUIVALENT PER SQUARE METRE
  9. ROMIPLOSTIM [Suspect]
     Active Substance: ROMIPLOSTIM
     Indication: PLATELET COUNT ABNORMAL
     Dosage: 500 MICROGRAM, 2 TIMES/WK
     Route: 058
  10. PREDNISONE. [Concomitant]
     Active Substance: PREDNISONE
     Dosage: 60 MILLIGRAM/SQ. METER
  11. VINCRISTINE [Concomitant]
     Active Substance: VINCRISTINE
     Dosage: 2 MILLIGRAM
  12. VINCRISTINE [Concomitant]
     Active Substance: VINCRISTINE
     Dosage: 6 MILLIGRAM
  13. HYDROCORTISONE. [Concomitant]
     Active Substance: HYDROCORTISONE
     Dosage: 40 MILLIGRAM
  14. DOXORUBICIN [Concomitant]
     Active Substance: DOXORUBICIN
     Dosage: 150 MILLIGRAM/SQ. METER
  15. 6-MERCAPTOPURINE MONOHYDRATE [Concomitant]
     Active Substance: MERCAPTOPURINE
     Dosage: 60 MILLIGRAM/SQ. METER, QD
  16. VINCRISTINE [Concomitant]
     Active Substance: VINCRISTINE
     Dosage: 1.4 MILLIGRAM/SQ. METER
  17. ETOPOSIDE. [Concomitant]
     Active Substance: ETOPOSIDE
     Dosage: 150 MILLIGRAM/SQ. METER
  18. DOXORUBICIN [Concomitant]
     Active Substance: DOXORUBICIN
     Dosage: 50 MILLIGRAM PER CUBIC METRE
  19. CYCLOPHOSPHAMIDE. [Concomitant]
     Active Substance: CYCLOPHOSPHAMIDE
     Dosage: 750 MILLIGRAM/SQ. METER
  20. KIDROLASE [Concomitant]
     Active Substance: ASPARAGINASE
     Dosage: 6000 UI/METER SQUARE, AT DAYS 8, 10, 12, 16, 18, 20, 22 AND 24
  21. ETOPOSIDE. [Concomitant]
     Active Substance: ETOPOSIDE
     Dosage: 75 MILLIGRAM/SQ. METER
  22. METHOTREXATE. [Concomitant]
     Active Substance: METHOTREXATE
     Dosage: 5000 MILLIGRAM/SQ. METER OVER 24H
  23. METHOTREXATE. [Concomitant]
     Active Substance: METHOTREXATE
     Dosage: 15 MILLIGRAM
  24. CYCLOPHOSPHAMIDE. [Concomitant]
     Active Substance: CYCLOPHOSPHAMIDE
     Dosage: 2250 MILLIEQUIVALENT PER SQUARE METRE
  25. CYTARABINE. [Concomitant]
     Active Substance: CYTARABINE
     Dosage: 30 MILLIGRAM/SQ. METER/12H
  26. CYTARABINE. [Concomitant]
     Active Substance: CYTARABINE
     Dosage: 40 MILLIGRAM

REACTIONS (4)
  - Pulmonary embolism [Unknown]
  - Hepatitis cholestatic [Unknown]
  - Febrile neutropenia [Unknown]
  - Off label use [Unknown]
